FAERS Safety Report 6371782-7 (Version None)
Quarter: 2009Q3

REPORT INFORMATION
  Report Type: 
  Country: None (occurrence: None)
  Receive Date: 20090918
  Receipt Date: 20090918
  Transmission Date: 20100115
  Serious: Yes (Hospitalization)
  Sender: FDA-Public Use
  Company Number: None

PATIENT
  Sex: Female
  Weight: 50.34 kg

DRUGS (1)
  1. MEMANTINE HCL [Suspect]
     Dosage: 25 MG

REACTIONS (9)
  - ASTHENIA [None]
  - DECREASED APPETITE [None]
  - DIZZINESS [None]
  - EATING DISORDER [None]
  - FAILURE TO THRIVE [None]
  - FATIGUE [None]
  - HEADACHE [None]
  - NAUSEA [None]
  - VISION BLURRED [None]
